FAERS Safety Report 7984173-X (Version None)
Quarter: 2011Q4

REPORT INFORMATION
  Report Type: 
  Country: None (occurrence: None)
  Receive Date: 20111213
  Receipt Date: 20110906
  Transmission Date: 20120403
  Serious: Yes (Other)
  Sender: FDA-Public Use
  Company Number: FK201101887

PATIENT
  Age: 50 Year
  Sex: Male

DRUGS (4)
  1. LEUCOVORIN CALCIUM [Suspect]
     Indication: COLORECTAL CANCER
  2. BEVACIZUMAB (BEVACIZUMAB) (BEVACIZUMAB) [Suspect]
     Indication: COLORECTAL CANCER
  3. FLUOROURACIL [Suspect]
     Indication: COLORECTAL CANCER
  4. OXALIPLATIN [Suspect]
     Indication: COLORECTAL CANCER

REACTIONS (3)
  - THROMBOCYTOPENIA [None]
  - SPLENOMEGALY [None]
  - HYPOAESTHESIA [None]
